FAERS Safety Report 15072650 (Version 1)
Quarter: 2018Q2

REPORT INFORMATION
  Report Type: Spontaneous
  Country: US (occurrence: US)
  Receive Date: 20180627
  Receipt Date: 20180627
  Transmission Date: 20180711
  Serious: No
  Sender: FDA-Public Use
  Company Number: PHEH2018US024520

PATIENT
  Age: 70 Year
  Sex: Male

DRUGS (5)
  1. TRAMADOL. [Suspect]
     Active Substance: TRAMADOL
     Indication: PRODUCT USED FOR UNKNOWN INDICATION
     Route: 065
  2. IDELALISIB [Suspect]
     Active Substance: IDELALISIB
     Indication: B-CELL LYMPHOMA
     Dosage: UNK, BID
     Route: 048
     Dates: start: 20151022
  3. IDELALISIB [Suspect]
     Active Substance: IDELALISIB
     Indication: HAEMOCHROMATOSIS
     Dosage: 150 MG, UNK
     Route: 048
     Dates: start: 20161103
  4. EXJADE [Suspect]
     Active Substance: DEFERASIROX
     Indication: HAEMOCHROMATOSIS
     Dosage: 500 MG, QD (DISSOLVE 3 TAB IN WATER OR JUICE)
     Route: 065
     Dates: start: 20151027
  5. EXJADE [Suspect]
     Active Substance: DEFERASIROX
     Indication: B-CELL LYMPHOMA

REACTIONS (1)
  - Intentional dose omission [Unknown]
